FAERS Safety Report 17289423 (Version 1)
Quarter: 2020Q1

REPORT INFORMATION
  Report Type: Spontaneous
  Country: US (occurrence: US)
  Receive Date: 20200120
  Receipt Date: 20200120
  Transmission Date: 20200409
  Serious: No
  Sender: FDA-Public Use
  Company Number: US-ASTRAZENECA-2020SE07320

PATIENT
  Age: 1 Year
  Sex: Male
  Weight: 10.2 kg

DRUGS (1)
  1. SYNAGIS [Suspect]
     Active Substance: PALIVIZUMAB
     Indication: PREMATURE BABY
     Dosage: 100MG/1 ML VL LIQUID 15MG/KG MONTHLY
     Route: 030
     Dates: start: 20191224

REACTIONS (1)
  - Weight decreased [Unknown]
